FAERS Safety Report 7967456-9 (Version None)
Quarter: 2011Q4

REPORT INFORMATION
  Report Type: 
  Country: None (occurrence: None)
  Receive Date: 20111209
  Receipt Date: 20110316
  Transmission Date: 20120403
  Serious: Yes (Other)
  Sender: FDA-Public Use
  Company Number: US-GLAXOSMITHKLINE-A0751456A

PATIENT
  Age: 34 Year
  Sex: Female

DRUGS (8)
  1. PROZAC [Concomitant]
     Dates: start: 19960101
  2. AVANDAMET [Suspect]
     Indication: TYPE 2 DIABETES MELLITUS
     Dosage: 4MG TWICE PER DAY
     Route: 048
     Dates: start: 20041130, end: 20050301
  3. GLUCOTROL [Concomitant]
     Dates: start: 20050106
  4. GLUCOTROL XL [Concomitant]
     Dates: start: 20050101
  5. LASIX [Concomitant]
     Dates: start: 20060701
  6. AVANDIA [Suspect]
     Indication: TYPE 2 DIABETES MELLITUS
     Dosage: 4MG TWICE PER DAY
     Route: 048
     Dates: start: 20050801, end: 20060801
  7. METFORMIN HCL [Concomitant]
     Dates: start: 20050401
  8. REGULAR INSULIN [Concomitant]
     Dates: start: 20040101, end: 20050101

REACTIONS (4)
  - PULMONARY OEDEMA [None]
  - LUNG DISORDER [None]
  - OEDEMA [None]
  - PLEURAL EFFUSION [None]
